FAERS Safety Report 15867609 (Version 2)
Quarter: 2019Q1

REPORT INFORMATION
  Report Type: Spontaneous
  Country: US (occurrence: US)
  Receive Date: 20190125
  Receipt Date: 20190301
  Transmission Date: 20190417
  Serious: Yes (Hospitalization, Other)
  Sender: FDA-Public Use
  Company Number: US-009507513-1901USA006176

PATIENT
  Age: 71 Year
  Sex: Male
  Weight: 99.32 kg

DRUGS (40)
  1. AMANTADINE. [Suspect]
     Active Substance: AMANTADINE HYDROCHLORIDE
     Indication: DYSKINESIA
     Dosage: 137 MILLIGRAM, 1X/DAY AT BEDTIME
     Route: 048
     Dates: start: 20180807, end: 20180813
  2. AMANTADINE. [Suspect]
     Active Substance: AMANTADINE HYDROCHLORIDE
     Dosage: 274 MILLIGRAM, QD
     Dates: start: 2018
  3. AMLODIPINE BESYLATE. [Concomitant]
     Active Substance: AMLODIPINE BESYLATE
  4. CARDURA [Concomitant]
     Active Substance: DOXAZOSIN MESYLATE
  5. MICRO K [Concomitant]
  6. BENAZEPRIL HYDROCHLORIDE. [Concomitant]
     Active Substance: BENAZEPRIL HYDROCHLORIDE
  7. AMANTADINE. [Suspect]
     Active Substance: AMANTADINE HYDROCHLORIDE
     Dosage: 274 MILLIGRAM, 1X/DAY AT BEDTIME
     Route: 048
     Dates: start: 20180814, end: 2018
  8. AMANTADINE. [Suspect]
     Active Substance: AMANTADINE HYDROCHLORIDE
     Dosage: 137 MILLIGRAM, 1X/DAY AT BEDTIME
     Dates: start: 2018
  9. DOCUSATE SODIUM. [Concomitant]
     Active Substance: DOCUSATE SODIUM
  10. TEMAZEPAM. [Concomitant]
     Active Substance: TEMAZEPAM
  11. SINEMET [Suspect]
     Active Substance: CARBIDOPA\LEVODOPA
     Dosage: UNK
     Route: 048
     Dates: start: 2018
  12. ASCORBIC ACID. [Concomitant]
     Active Substance: ASCORBIC ACID
  13. BACLOFEN. [Concomitant]
     Active Substance: BACLOFEN
  14. KETOCONAZOLE. [Concomitant]
     Active Substance: KETOCONAZOLE
  15. BENAZEPRIL HYDROCHLORIDE. [Concomitant]
     Active Substance: BENAZEPRIL HYDROCHLORIDE
  16. DOXAZOSIN [Concomitant]
     Active Substance: DOXAZOSIN\DOXAZOSIN MESYLATE
  17. ATORVASTATIN [Concomitant]
     Active Substance: ATORVASTATIN
  18. GABAPENTIN. [Concomitant]
     Active Substance: GABAPENTIN
  19. HYDROCHLOROTHIAZIDE. [Concomitant]
     Active Substance: HYDROCHLOROTHIAZIDE
  20. NYSTATIN. [Concomitant]
     Active Substance: NYSTATIN
  21. SINEMET [Suspect]
     Active Substance: CARBIDOPA\LEVODOPA
     Dosage: 2 TABLETS 3X/DAY WITH MEALS
     Route: 048
  22. NAPROXEN. [Concomitant]
     Active Substance: NAPROXEN
     Dosage: UNK
     Dates: end: 201810
  23. POTASSIUM (UNSPECIFIED) [Concomitant]
     Active Substance: POTASSIUM
  24. NEURONTIN [Concomitant]
     Active Substance: GABAPENTIN
     Dosage: UNK
     Dates: start: 201810
  25. NUPLAZID [Concomitant]
     Active Substance: PIMAVANSERIN TARTRATE
  26. SEROQUEL [Concomitant]
     Active Substance: QUETIAPINE FUMARATE
  27. OMEPRAZOLE. [Concomitant]
     Active Substance: OMEPRAZOLE
  28. FLONASE [Concomitant]
     Active Substance: FLUTICASONE PROPIONATE
  29. ACETAMINOPHEN (+) HYDROCODONE BITARTRATE [Concomitant]
     Active Substance: ACETAMINOPHEN\HYDROCODONE BITARTRATE
     Dosage: STRENGTH:7.25-325 (UNITS UNKNOWN)
     Dates: end: 201810
  30. PAROXETINE HYDROCHLORIDE. [Concomitant]
     Active Substance: PAROXETINE HYDROCHLORIDE
  31. FOLIC ACID. [Concomitant]
     Active Substance: FOLIC ACID
  32. AMLODIPINE BESYLATE. [Concomitant]
     Active Substance: AMLODIPINE BESYLATE
  33. BACTROBAN [Concomitant]
     Active Substance: MUPIROCIN\MUPIROCIN CALCIUM
     Dosage: UNK
     Dates: end: 201810
  34. ZOCOR [Concomitant]
     Active Substance: SIMVASTATIN
     Dosage: UNK
  35. SINEMET [Suspect]
     Active Substance: CARBIDOPA\LEVODOPA
     Dosage: UNK
     Route: 048
  36. LASIX [Concomitant]
     Active Substance: FUROSEMIDE
  37. NEURONTIN [Concomitant]
     Active Substance: GABAPENTIN
     Dosage: UNK
     Dates: end: 201810
  38. OMEPRAZOLE. [Concomitant]
     Active Substance: OMEPRAZOLE
  39. FERROUS SULFATE. [Concomitant]
     Active Substance: FERROUS SULFATE
  40. LASIX [Concomitant]
     Active Substance: FUROSEMIDE

REACTIONS (19)
  - Pneumonia [Unknown]
  - Bradycardia [Unknown]
  - Fall [Unknown]
  - Dystonia [Unknown]
  - Altered visual depth perception [Recovering/Resolving]
  - Muscular weakness [Unknown]
  - Skin laceration [Unknown]
  - Cerebrovascular accident [Unknown]
  - Musculoskeletal chest pain [Unknown]
  - Empyema [Recovering/Resolving]
  - Rib fracture [Unknown]
  - Acute kidney injury [Unknown]
  - Urinary retention [Unknown]
  - Hypotonia [Unknown]
  - Fall [Recovered/Resolved]
  - Hallucinations, mixed [Recovered/Resolved]
  - Muscle strain [Unknown]
  - Somnolence [Not Recovered/Not Resolved]
  - Coordination abnormal [Unknown]

NARRATIVE: CASE EVENT DATE: 2018
